FAERS Safety Report 5822999-9 (Version None)
Quarter: 2008Q3

REPORT INFORMATION
  Report Type: 
  Country: None (occurrence: None)
  Receive Date: 20080725
  Receipt Date: 20080717
  Transmission Date: 20090109
  Serious: Yes (Other)
  Sender: FDA-Public Use
  Company Number: B0529526A

PATIENT
  Age: 58 Year
  Sex: Female

DRUGS (4)
  1. SERETIDE [Suspect]
     Indication: ASTHMA
     Dosage: 2PUFF TWICE PER DAY
     Route: 055
     Dates: start: 20070701
  2. LORAZEPAM [Concomitant]
     Dosage: 1MG THREE TIMES PER DAY
  3. LANSOPRAZOLE [Concomitant]
     Dosage: 30MG PER DAY
  4. ANTIBIOTICS [Concomitant]

REACTIONS (4)
  - ASTHMA [None]
  - COUGH [None]
  - DYSPNOEA [None]
  - WHEEZING [None]
